FAERS Safety Report 6212034-5 (Version None)
Quarter: 2009Q2

REPORT INFORMATION
  Report Type: 
  Country: None (occurrence: None)
  Receive Date: 20090529
  Receipt Date: 20090511
  Transmission Date: 20091009
  Serious: Yes (Hospitalization, Other)
  Sender: FDA-Public Use
  Company Number: JPI-P-007123

PATIENT
  Age: 38 Year
  Sex: Female
  Weight: 58.0604 kg

DRUGS (11)
  1. XYREM [Suspect]
     Indication: FIBROMYALGIA
     Dosage: SEE IMAGE
     Route: 048
     Dates: start: 20090406, end: 20090101
  2. XYREM [Suspect]
     Indication: NARCOLEPSY
     Dosage: SEE IMAGE
     Route: 048
     Dates: start: 20090406, end: 20090101
  3. XYREM [Suspect]
     Indication: FIBROMYALGIA
     Dosage: SEE IMAGE
     Route: 048
     Dates: start: 20090321, end: 20090301
  4. XYREM [Suspect]
     Indication: NARCOLEPSY
     Dosage: SEE IMAGE
     Route: 048
     Dates: start: 20090321, end: 20090301
  5. XYREM [Suspect]
     Indication: FIBROMYALGIA
     Dosage: SEE IMAGE
     Route: 048
     Dates: start: 20090301, end: 20090329
  6. XYREM [Suspect]
     Indication: NARCOLEPSY
     Dosage: SEE IMAGE
     Route: 048
     Dates: start: 20090301, end: 20090329
  7. XYREM [Suspect]
     Indication: FIBROMYALGIA
     Dosage: SEE IMAGE
     Route: 048
     Dates: start: 20090330, end: 20090405
  8. XYREM [Suspect]
     Indication: NARCOLEPSY
     Dosage: SEE IMAGE
     Route: 048
     Dates: start: 20090330, end: 20090405
  9. XYREM [Suspect]
     Indication: FIBROMYALGIA
     Dosage: SEE IMAGE
     Route: 048
     Dates: start: 20090101, end: 20090506
  10. XYREM [Suspect]
     Indication: NARCOLEPSY
     Dosage: SEE IMAGE
     Route: 048
     Dates: start: 20090101, end: 20090506
  11. TOPIRAMATE [Concomitant]

REACTIONS (12)
  - ANOREXIA [None]
  - DIZZINESS [None]
  - FEELING JITTERY [None]
  - HANGOVER [None]
  - HEADACHE [None]
  - MYOPERICARDITIS [None]
  - NAUSEA [None]
  - OEDEMA PERIPHERAL [None]
  - SENSITIVITY OF TEETH [None]
  - SWELLING FACE [None]
  - TREMOR [None]
  - WEIGHT DECREASED [None]
